FAERS Safety Report 6827376-X (Version None)
Quarter: 2010Q3

REPORT INFORMATION
  Report Type: 
  Country: None (occurrence: None)
  Receive Date: 20100709
  Receipt Date: 20100702
  Transmission Date: 20110219
  Serious: Yes (Other)
  Sender: FDA-Public Use
  Company Number: B0664551A

PATIENT
  Age: 63 Year
  Sex: Male

DRUGS (1)
  1. NEOTIGASON [Suspect]
     Indication: PSORIASIS
     Dosage: 35MG PER DAY
     Route: 065
     Dates: start: 20100421, end: 20100527

REACTIONS (9)
  - ARTHRALGIA [None]
  - ARTHROPATHY [None]
  - DRY SKIN [None]
  - ERYTHEMA [None]
  - EYE SWELLING [None]
  - JOINT SWELLING [None]
  - MOBILITY DECREASED [None]
  - OEDEMA PERIPHERAL [None]
  - PAIN IN EXTREMITY [None]
